FAERS Safety Report 10175954 (Version 1)
Quarter: 2014Q2

REPORT INFORMATION
  Report Type: Spontaneous
  Country: US (occurrence: None)
  Receive Date: 20140416
  Receipt Date: 20140416
  Transmission Date: 20141212
  Serious: Yes (Other)
  Sender: FDA-Public Use
  Company Number: 163-POMAL-14020950

PATIENT
  Age: 58 Year
  Sex: Female

DRUGS (12)
  1. POMALYST (POMALIDOMIDE) (2 MILLIGRAM, CAPSULES) [Suspect]
     Indication: PLASMA CELL MYELOMA
     Dosage: 2 MG, 21 IN 21 D, PO
     Route: 048
     Dates: start: 20131217
  2. FLONASE NASAL SPRAY (FLUTICASONE PROPIONATE) ((SPRAY NOT INHALATION)) [Concomitant]
  3. OXYCONTIN (OXYCODONE HYDROCHLORIDE) (UNKNOWN) [Concomitant]
  4. CABERGOLINE (CABERGOLINE) (UNKNOWN) [Concomitant]
  5. ACYCLOVIR (ACICLOVIR) (UNKNOWN) [Concomitant]
  6. ATENOLOL (ATENOLOL) (UNKNOWN) [Concomitant]
  7. METANX (METANX) (UNKNOWN) [Concomitant]
  8. ESTROGEN (ESTRADIOL) (UNKNOWN) [Concomitant]
  9. ZOMETA (ZOLEDRONIC ACID) (INJECTION) [Concomitant]
  10. PROMETRIUM (PROGESTERONE) (UNKNOWN) [Concomitant]
  11. ERGOCALCIFEROL (ERGOCALCIFEROL) (UNKNOWN) [Concomitant]
  12. LEUKINE (SARGRAMOSTIM) (INJECTION) [Concomitant]

REACTIONS (4)
  - Gastrooesophageal reflux disease [None]
  - Throat irritation [None]
  - Dysgeusia [None]
  - Constipation [None]
